FAERS Safety Report 7508536-1 (Version None)
Quarter: 2011Q2

REPORT INFORMATION
  Report Type: 
  Country: None (occurrence: None)
  Receive Date: 20110527
  Receipt Date: 20110523
  Transmission Date: 20111010
  Serious: Yes (Hospitalization, Other)
  Sender: FDA-Public Use
  Company Number: US-ELI_LILLY_AND_COMPANY-US201002003753

PATIENT
  Sex: Male
  Weight: 111.11 kg

DRUGS (13)
  1. BYETTA [Suspect]
     Dosage: 10 UG, BID
     Route: 065
     Dates: start: 20060401, end: 20070809
  2. METFORMIN HCL [Concomitant]
     Dosage: 1000 MG, BID
     Route: 048
  3. PRILOSEC [Concomitant]
     Indication: DYSPEPSIA
  4. LISINOPRIL [Concomitant]
     Dosage: 20 MG, QD
  5. RELAFEN [Concomitant]
     Dosage: 750 MG, BID
     Route: 048
  6. TRICOR [Concomitant]
     Dosage: 145 MG, QD
  7. ACTOS [Concomitant]
     Dosage: 45 MG, QD
  8. ORAL ANTIDIABETICS [Concomitant]
  9. LIPITOR [Concomitant]
     Dosage: 20 MG, EACH EVENING
     Route: 048
  10. FISH OIL [Concomitant]
     Dosage: 1000 MG, BID
  11. ACTOS [Concomitant]
     Dosage: 30 MG, QD
  12. NEXIUM [Concomitant]
     Dosage: 40 MG, QD
  13. MULTI-VITAMIN [Concomitant]

REACTIONS (4)
  - TYPE 1 DIABETES MELLITUS [None]
  - AUTONOMIC NEUROPATHY [None]
  - PANCREATITIS ACUTE [None]
  - DIABETIC GASTROPARESIS [None]
